FAERS Safety Report 6625925-8 (Version None)
Quarter: 2010Q1

REPORT INFORMATION
  Report Type: 
  Country: None (occurrence: None)
  Receive Date: 20100310
  Receipt Date: 20100301
  Transmission Date: 20100710
  Serious: Yes (Death)
  Sender: FDA-Public Use
  Company Number: GXKR2010FR02472

PATIENT

DRUGS (3)
  1. DISOPYRAMIDE (NGX) [Suspect]
     Dosage: 3 G
     Route: 065
  2. CITALOPRAM HYDROBROMIDE [Suspect]
     Dosage: 0.2 G
     Route: 065
  3. LITHIUM [Suspect]
     Dosage: 7.5 G
     Route: 065

REACTIONS (5)
  - BRADYCARDIA [None]
  - CARDIAC ARREST [None]
  - LIFE SUPPORT [None]
  - MECHANICAL VENTILATION [None]
  - OVERDOSE [None]
